FAERS Safety Report 21105381 (Version 3)
Quarter: 2022Q3

REPORT INFORMATION
  Report Type: Spontaneous
  Country: US (occurrence: US)
  Receive Date: 20220720
  Receipt Date: 20220906
  Transmission Date: 20221027
  Serious: Yes (Other)
  Sender: FDA-Public Use
  Company Number: US-PFIZER INC-202200976214

PATIENT
  Age: 85 Year
  Sex: Female
  Weight: 76.65 kg

DRUGS (2)
  1. IBRANCE [Suspect]
     Active Substance: PALBOCICLIB
     Indication: Breast cancer metastatic
     Dosage: 75 MG, CYCLIC (ONCE A DAY FOR 21 CONTINUOUS DAYS, OFF FOR 7 DAYS, EVERY 28 DAYS)
  2. FASLODEX [Concomitant]
     Active Substance: FULVESTRANT
     Dosage: UNK

REACTIONS (2)
  - Liver injury [Unknown]
  - Weight decreased [Unknown]
